FAERS Safety Report 8314429-2 (Version None)
Quarter: 2012Q2

REPORT INFORMATION
  Report Type: 
  Country: None (occurrence: None)
  Receive Date: 20120426
  Receipt Date: 20120418
  Transmission Date: 20120825
  Serious: Yes (Other)
  Sender: FDA-Public Use
  Company Number: US-ASTRAZENECA-2012SE02689

PATIENT
  Age: 73 Year
  Sex: Female

DRUGS (2)
  1. ATACAND [Suspect]
     Route: 048
  2. TOPROL-XL [Suspect]
     Route: 048

REACTIONS (11)
  - BLOOD PRESSURE INCREASED [None]
  - MALAISE [None]
  - INTENTIONAL DRUG MISUSE [None]
  - LIGAMENT RUPTURE [None]
  - CYST RUPTURE [None]
  - FALL [None]
  - ADVERSE EVENT [None]
  - HYPOKINESIA [None]
  - EYE INJURY [None]
  - LIGAMENT INJURY [None]
  - CYST [None]
